FAERS Safety Report 23897792 (Version 1)
Quarter: 2024Q2

REPORT INFORMATION
  Report Type: Spontaneous
  Country: US (occurrence: US)
  Receive Date: 20240524
  Receipt Date: 20240524
  Transmission Date: 20240715
  Serious: Yes (Other)
  Sender: FDA-Public Use
  Company Number: US-JNJFOC-20240548720

PATIENT
  Age: 42 Year
  Sex: Female

DRUGS (5)
  1. SPRAVATO [Suspect]
     Active Substance: ESKETAMINE
     Indication: Depression
  2. XANAX [Suspect]
     Active Substance: ALPRAZOLAM
     Indication: Product used for unknown indication
     Route: 065
  3. GABAPENTIN [Concomitant]
     Active Substance: GABAPENTIN
  4. NUEDEXTA [Concomitant]
     Active Substance: DEXTROMETHORPHAN HYDROBROMIDE\QUINIDINE SULFATE
  5. SEROQUEL [Concomitant]
     Active Substance: QUETIAPINE FUMARATE

REACTIONS (7)
  - Respiratory depression [Recovered/Resolved]
  - Hemiparesis [Recovering/Resolving]
  - Facial paralysis [Recovered/Resolved]
  - Blood pressure increased [Recovered/Resolved]
  - Eyelid ptosis [Recovering/Resolving]
  - Discomfort [Recovering/Resolving]
  - Vision blurred [Recovered/Resolved]
